FAERS Safety Report 13044949 (Version 3)
Quarter: 2017Q3

REPORT INFORMATION
  Report Type: Report from Study
  Country: US (occurrence: US)
  Receive Date: 20161220
  Receipt Date: 20170818
  Transmission Date: 20171127
  Serious: Yes (Hospitalization, Other)
  Sender: FDA-Public Use
  Company Number: US-AMGEN-USASL2016176619

PATIENT
  Age: 67 Year
  Sex: Male

DRUGS (2)
  1. REPATHA [Suspect]
     Active Substance: EVOLOCUMAB
     Indication: LOW DENSITY LIPOPROTEIN INCREASED
     Dosage: 140 MG, 2 TIMES MONTH
     Route: 065
     Dates: start: 2016
  2. PLAVIX [Suspect]
     Active Substance: CLOPIDOGREL BISULFATE
     Indication: PRODUCT USED FOR UNKNOWN INDICATION
     Route: 065

REACTIONS (6)
  - Drug dose omission [Unknown]
  - Stent placement [Unknown]
  - Dementia [Unknown]
  - Hospitalisation [Unknown]
  - Injection site pain [Unknown]
  - Increased tendency to bruise [Unknown]
